FAERS Safety Report 13617776 (Version 1)
Quarter: 2017Q2

REPORT INFORMATION
  Report Type: Spontaneous
  Country: JP (occurrence: JP)
  Receive Date: 20170606
  Receipt Date: 20170606
  Transmission Date: 20170830
  Serious: Yes (Life-Threatening)
  Sender: FDA-Public Use
  Company Number: JP-HERITAGE PHARMACEUTICALS-2017HTG00135

PATIENT
  Age: 61 Year
  Sex: Male

DRUGS (2)
  1. ACETAZOLAMIDE. [Suspect]
     Active Substance: ACETAZOLAMIDE
     Indication: METABOLIC ALKALOSIS
     Dosage: 500 MG, ONCE
     Route: 042
  2. ACETAZOLAMIDE. [Suspect]
     Active Substance: ACETAZOLAMIDE
     Indication: URINE OUTPUT DECREASED
     Dosage: 500 MG, ONCE
     Route: 042

REACTIONS (2)
  - Non-cardiogenic pulmonary oedema [Recovered/Resolved]
  - Respiratory failure [Recovered/Resolved]
